FAERS Safety Report 9887397 (Version 1)
Quarter: 2014Q1

REPORT INFORMATION
  Report Type: Spontaneous
  Country: US (occurrence: US)
  Receive Date: 20140211
  Receipt Date: 20140211
  Transmission Date: 20141002
  Serious: No
  Sender: FDA-Public Use
  Company Number: US-009507513-1402USA003946

PATIENT
  Age: 63 Year
  Sex: Female

DRUGS (8)
  1. JANUVIA [Suspect]
     Indication: DIABETES MELLITUS
     Dosage: 50 MG, QD (SPLIT TABLET)
     Route: 048
     Dates: start: 201401
  2. JANUVIA [Suspect]
     Indication: DIABETES MELLITUS
     Dosage: 50 MG, QD
     Route: 048
     Dates: start: 201302, end: 201401
  3. METOPROLOL [Concomitant]
  4. STANOLONE [Concomitant]
  5. LOSARTAN POTASSIUM TABLETS [Concomitant]
  6. CRESTOR [Concomitant]
  7. CETIRIZINE HYDROCHLORIDE [Concomitant]
  8. PROAIR (PROCATEROL HYDROCHLORIDE) [Concomitant]

REACTIONS (1)
  - Headache [Recovered/Resolved]
